FAERS Safety Report 15597154 (Version 2)
Quarter: 2018Q4

REPORT INFORMATION
  Report Type: Spontaneous
  Country: US (occurrence: US)
  Receive Date: 20181108
  Receipt Date: 20181221
  Transmission Date: 20190205
  Serious: Yes (Hospitalization, Disabling, Other)
  Sender: FDA-Public Use
  Company Number: US-AMGEN-USASP2018155261

PATIENT
  Age: 79 Year
  Sex: Female
  Weight: 51 kg

DRUGS (1)
  1. PROLIA [Suspect]
     Active Substance: DENOSUMAB
     Indication: OSTEOPOROSIS POSTMENOPAUSAL
     Dosage: 60 MG, UNK
     Route: 065
     Dates: start: 20151016

REACTIONS (1)
  - Atypical femur fracture [Recovering/Resolving]

NARRATIVE: CASE EVENT DATE: 20181025
